FAERS Safety Report 19787084 (Version 1)
Quarter: 2021Q3

REPORT INFORMATION
  Report Type: Spontaneous
  Country: US (occurrence: US)
  Receive Date: 20210903
  Receipt Date: 20210903
  Transmission Date: 20211014
  Serious: No
  Sender: FDA-Public Use
  Company Number: US-PFIZER INC-202101006941

PATIENT
  Age: 72 Year
  Sex: Male

DRUGS (2)
  1. MEKTOVI [Suspect]
     Active Substance: BINIMETINIB
     Indication: NEUROENDOCRINE CARCINOMA
     Dosage: UNK
  2. BRAFTOVI [Suspect]
     Active Substance: ENCORAFENIB
     Indication: NEUROENDOCRINE CARCINOMA
     Dosage: UNK

REACTIONS (2)
  - Hypersomnia [Unknown]
  - Off label use [Unknown]
